FAERS Safety Report 4360055-X (Version None)
Quarter: 2004Q2

REPORT INFORMATION
  Report Type: 
  Country: None (occurrence: None)
  Receive Date: 20040513
  Receipt Date: 20040510
  Transmission Date: 20050107
  Serious: Yes (Death)
  Sender: FDA-Public Use
  Company Number: 04-00156

PATIENT
  Sex: Male

DRUGS (1)
  1. KADIAN [Suspect]
     Dosage: 100MG, UNKNOWN, UNKNOWN

REACTIONS (1)
  - DRUG TOXICITY [None]
